FAERS Safety Report 9313569 (Version 3)
Quarter: 2013Q2

REPORT INFORMATION
  Report Type: Spontaneous
  Country: BE (occurrence: BE)
  Receive Date: 20130528
  Receipt Date: 20130610
  Transmission Date: 20140414
  Serious: Yes (Death)
  Sender: FDA-Public Use
  Company Number: PHHY2013BE052686

PATIENT
  Age: 50 Year
  Sex: Female

DRUGS (4)
  1. GILENYA [Suspect]
     Indication: RELAPSING-REMITTING MULTIPLE SCLEROSIS
     Route: 048
     Dates: start: 20130228
  2. ALDACTONE [Concomitant]
     Indication: HYPERTENSION
  3. DITROPAN [Concomitant]
  4. TRAZODONE [Concomitant]

REACTIONS (3)
  - Death [Fatal]
  - Local swelling [Unknown]
  - Pain in extremity [Unknown]
